FAERS Safety Report 5839783-2 (Version None)
Quarter: 2008Q3

REPORT INFORMATION
  Report Type: 
  Country: None (occurrence: None)
  Receive Date: 20080807
  Receipt Date: 20080807
  Transmission Date: 20090109
  Serious: No
  Sender: FDA-Public Use
  Company Number: None

PATIENT
  Sex: Male

DRUGS (2)
  1. LAMICTAL [Suspect]
     Indication: EPILEPSY
     Dosage: 50MG TWICE DAILY PO
     Route: 048
     Dates: start: 20050121
  2. LAMICTAL [Suspect]
     Dosage: 200MG TWICE DAILY PO
     Route: 048
     Dates: start: 20040123

REACTIONS (1)
  - CONVULSION [None]
